FAERS Safety Report 9262327 (Version 1)
Quarter: 2013Q2

REPORT INFORMATION
  Report Type: Spontaneous
  Country: US (occurrence: None)
  Receive Date: 20130425
  Receipt Date: 20130425
  Transmission Date: 20140414
  Serious: Yes (Other)
  Sender: FDA-Public Use
  Company Number: None

PATIENT
  Age: 42 Year
  Sex: Male
  Weight: 81.65 kg

DRUGS (2)
  1. TRAMADOL [Suspect]
     Indication: CERVICAL RADICULOPATHY
     Dosage: Q6H PRN
     Route: 048
     Dates: start: 20130423, end: 20130424
  2. GABAPENTIN [Suspect]
     Dosage: QHS
     Route: 048
     Dates: start: 20130423, end: 20130424

REACTIONS (5)
  - Somnolence [None]
  - Dizziness [None]
  - Lethargy [None]
  - Confusional state [None]
  - Vomiting [None]
